FAERS Safety Report 7099926-2 (Version None)
Quarter: 2010Q4

REPORT INFORMATION
  Report Type: 
  Country: None (occurrence: None)
  Receive Date: 20101112
  Receipt Date: 20101110
  Transmission Date: 20110411
  Serious: Yes (Hospitalization, Other)
  Sender: FDA-Public Use
  Company Number: US-PFIZER INC-2010144919

PATIENT
  Age: 59 Year
  Sex: Female

DRUGS (1)
  1. FLAGYL [Suspect]
     Dosage: 250 MG, 3X/DAY

REACTIONS (1)
  - TOXIC ENCEPHALOPATHY [None]
